FAERS Safety Report 9031392 (Version 1)
Quarter: 2013Q1

REPORT INFORMATION
  Report Type: Report from Study
  Country: US (occurrence: US)
  Receive Date: 20130124
  Receipt Date: 20130124
  Transmission Date: 20140127
  Serious: Yes (Hospitalization)
  Sender: FDA-Public Use
  Company Number: US-MERCK-1301USA007203

PATIENT
  Age: 73 Year
  Sex: Female
  Weight: 74.5 kg

DRUGS (2)
  1. VORINOSTAT [Suspect]
     Indication: MYELODYSPLASTIC SYNDROME
     Dosage: 300 MG, BID, DAYS 3-9 28 DAY CYCLE
     Route: 048
     Dates: start: 20121023
  2. AZACITIDINE [Suspect]
     Indication: MYELODYSPLASTIC SYNDROME
     Dosage: 75 MG/M2, QD, DAYS 1-7 OF 28 DAY CYCLE
     Route: 058
     Dates: start: 20121023

REACTIONS (1)
  - Dyspnoea [Recovered/Resolved]
